FAERS Safety Report 9611616 (Version 1)
Quarter: 2013Q4

REPORT INFORMATION
  Report Type: Report from Study
  Country: FR (occurrence: FR)
  Receive Date: 20131010
  Receipt Date: 20131010
  Transmission Date: 20140711
  Serious: Yes (Hospitalization)
  Sender: FDA-Public Use
  Company Number: FR-CELGENEUS-056-C4047-13094443

PATIENT
  Age: 63 Year
  Sex: Female
  Weight: 60 kg

DRUGS (7)
  1. CC-4047 [Suspect]
     Indication: PLASMA CELL MYELOMA
     Dosage: 4 MILLIGRAM
     Route: 048
     Dates: start: 20130212
  2. CC-4047 [Suspect]
     Dosage: 3 MILLIGRAM
     Route: 048
     Dates: start: 20130329
  3. CC-4047 [Suspect]
     Dosage: 2 MILLIGRAM
     Route: 048
     Dates: start: 20130614, end: 20130618
  4. CC-4047 [Suspect]
     Dosage: 2 MILLIGRAM
     Route: 048
     Dates: start: 20130801
  5. DEXAMETHASONE [Concomitant]
     Indication: PLASMA CELL MYELOMA
     Route: 065
  6. ASPIRINE [Concomitant]
     Indication: PROPHYLAXIS
     Route: 065
  7. LEVOTHYROX [Concomitant]
     Indication: PRODUCT USED FOR UNKNOWN INDICATION
     Route: 065

REACTIONS (5)
  - Haematoma [Recovered/Resolved]
  - Pulmonary embolism [Not Recovered/Not Resolved]
  - Fatigue [Not Recovered/Not Resolved]
  - Dizziness [Not Recovered/Not Resolved]
  - Tremor [Not Recovered/Not Resolved]
